FAERS Safety Report 25689993 (Version 1)
Quarter: 2025Q3

REPORT INFORMATION
  Report Type: Report from Study
  Country: CA (occurrence: CA)
  Receive Date: 20250818
  Receipt Date: 20250818
  Transmission Date: 20251021
  Serious: Yes (Hospitalization, Other)
  Sender: TAKEDA
  Company Number: CA-TAKEDA-2025TUS071433

PATIENT
  Sex: Male

DRUGS (6)
  1. VEDOLIZUMAB [Suspect]
     Active Substance: VEDOLIZUMAB
     Indication: Colitis ulcerative
  2. VEDOLIZUMAB [Suspect]
     Active Substance: VEDOLIZUMAB
     Dosage: 300 MILLIGRAM, Q4WEEKS
     Dates: start: 20190917
  3. URSODIOL [Concomitant]
     Active Substance: URSODIOL
  4. RAMIPRIL [Concomitant]
     Active Substance: RAMIPRIL
  5. TACROLIMUS [Concomitant]
     Active Substance: TACROLIMUS
  6. CELEXA [Concomitant]
     Active Substance: CITALOPRAM HYDROBROMIDE

REACTIONS (3)
  - Pancreatitis [Unknown]
  - Dehydration [Unknown]
  - Viral infection [Recovered/Resolved]
